FAERS Safety Report 9122173 (Version 1)
Quarter: 2013Q1

REPORT INFORMATION
  Report Type: Spontaneous
  Country: US (occurrence: US)
  Receive Date: 20130114
  Receipt Date: 20130114
  Transmission Date: 20140127
  Serious: No
  Sender: FDA-Public Use
  Company Number: US-BIOGENIDEC-2013BI001415

PATIENT
  Sex: Female

DRUGS (9)
  1. TYSABRI [Suspect]
     Indication: MULTIPLE SCLEROSIS
     Route: 042
     Dates: start: 20080319, end: 20101221
  2. TYSABRI [Suspect]
     Indication: MULTIPLE SCLEROSIS
     Route: 042
     Dates: start: 20111111
  3. PLAVIX [Concomitant]
     Indication: CEREBROVASCULAR ACCIDENT PROPHYLAXIS
  4. KEPPRA [Concomitant]
     Indication: CONVULSION
  5. LIPITOR [Concomitant]
     Indication: BLOOD CHOLESTEROL INCREASED
  6. MORPHINE [Concomitant]
     Indication: PAIN
  7. INSULIN (NOS) [Concomitant]
     Indication: DIABETES MELLITUS
  8. ATENOLOL [Concomitant]
     Indication: HYPERTENSION
  9. VICK^S VAPOR RUB [Concomitant]
     Indication: SKIN FISSURES

REACTIONS (10)
  - Acarodermatitis [Recovered/Resolved]
  - Skin lesion [Not Recovered/Not Resolved]
  - Tooth fracture [Unknown]
  - Dysuria [Recovered/Resolved]
  - Blood urine present [Recovered/Resolved]
  - Blood cholesterol increased [Unknown]
  - Muscle spasms [Recovered/Resolved]
  - Cardiovascular disorder [Unknown]
  - Secondary progressive multiple sclerosis [Unknown]
  - Pain [Unknown]
